FAERS Safety Report 24851356 (Version 1)
Quarter: 2025Q1

REPORT INFORMATION
  Report Type: Spontaneous
  Country: CA (occurrence: CA)
  Receive Date: 20250116
  Receipt Date: 20250116
  Transmission Date: 20250409
  Serious: Yes (Hospitalization)
  Sender: TAKEDA
  Company Number: CA-TAKEDA-2025TUS003921

PATIENT
  Age: 66 Year
  Sex: Female

DRUGS (2)
  1. GAMMAGARD LIQUID [Suspect]
     Active Substance: HUMAN IMMUNOGLOBULIN G
     Indication: Product used for unknown indication
     Dates: start: 20240403, end: 20240403
  2. NOREPINEPHRINE [Concomitant]
     Active Substance: NOREPINEPHRINE

REACTIONS (7)
  - Post procedural infection [Recovering/Resolving]
  - Klebsiella infection [Recovering/Resolving]
  - Staphylococcal infection [Recovering/Resolving]
  - Hypotension [Unknown]
  - Heart rate decreased [Unknown]
  - Oxygen saturation increased [Unknown]
  - Body temperature increased [Unknown]
